FAERS Safety Report 15275298 (Version 1)
Quarter: 2018Q3

REPORT INFORMATION
  Report Type: Report from Study
  Country: ES (occurrence: ES)
  Receive Date: 20180814
  Receipt Date: 20180814
  Transmission Date: 20181010
  Serious: Yes (Other)
  Sender: FDA-Public Use
  Company Number: ES-TEVA-2018-ES-939194

PATIENT
  Sex: Male

DRUGS (11)
  1. PARACETAMOL CODEINE [Concomitant]
     Active Substance: ACETAMINOPHEN\CODEINE PHOSPHATE
     Indication: SCIATICA
     Route: 048
     Dates: start: 20171108
  2. SOLOSTAR [Suspect]
     Active Substance: DEVICE
     Indication: TYPE 2 DIABETES MELLITUS
     Route: 065
  3. EXFORGE [Suspect]
     Active Substance: AMLODIPINE BESYLATE\VALSARTAN
     Dosage: 1?0?1 UNITS UNKNOWN
     Route: 048
     Dates: end: 20171208
  4. APIDRA SOLOSTAR [Suspect]
     Active Substance: INSULIN GLULISINE
     Indication: TYPE 2 DIABETES MELLITUS
     Dosage: 14?0?0 UNITS UNKNOWN
     Route: 058
  5. PROVISACOR [Suspect]
     Active Substance: ROSUVASTATIN
     Dosage: 1?0?1 UNITS UNKNOWN
     Route: 048
     Dates: end: 20171208
  6. SOLOSTAR [Suspect]
     Active Substance: DEVICE
     Indication: TYPE 2 DIABETES MELLITUS
     Route: 065
  7. PEPTICUM [Concomitant]
     Active Substance: OMEPRAZOLE
     Indication: ABDOMINAL DISCOMFORT
     Route: 048
     Dates: start: 20171108
  8. PARACETAMOL CODEINE [Concomitant]
     Active Substance: ACETAMINOPHEN\CODEINE PHOSPHATE
     Indication: PAIN IN EXTREMITY
     Route: 048
     Dates: start: 20171108
  9. ROSUVASTATIN. [Suspect]
     Active Substance: ROSUVASTATIN
     Dosage: 1?0?0 UNITS UNKNOWN
     Route: 048
     Dates: end: 20171208
  10. LANTUS SOLOSTAR [Suspect]
     Active Substance: INSULIN GLARGINE
     Indication: TYPE 2 DIABETES MELLITUS
     Route: 058
  11. NOLPAZA [Concomitant]
     Active Substance: PANTOPRAZOLE SODIUM
     Route: 048

REACTIONS (11)
  - Headache [Not Recovered/Not Resolved]
  - Back pain [Not Recovered/Not Resolved]
  - Abdominal distension [Not Recovered/Not Resolved]
  - Nervousness [Recovered/Resolved]
  - Gait inability [Unknown]
  - Constipation [Not Recovered/Not Resolved]
  - Hypertension [Not Recovered/Not Resolved]
  - Condition aggravated [Not Recovered/Not Resolved]
  - Blood glucose increased [Recovered/Resolved]
  - Peripheral swelling [Not Recovered/Not Resolved]
  - Abdominal pain upper [Not Recovered/Not Resolved]

NARRATIVE: CASE EVENT DATE: 2017
